FAERS Safety Report 24394380 (Version 2)
Quarter: 2025Q3

REPORT INFORMATION
  Report Type: Report from Study
  Country: US (occurrence: US)
  Receive Date: 20241004
  Receipt Date: 20250809
  Transmission Date: 20251020
  Serious: Yes (Other)
  Sender: ALEXION PHARMACEUTICALS
  Company Number: US-ASTRAZENECA-202409USA008771US

PATIENT
  Age: 67 Year
  Sex: Female

DRUGS (1)
  1. TAGRISSO [Suspect]
     Active Substance: OSIMERTINIB
     Indication: Lung carcinoma cell type unspecified stage 0
     Dosage: 40 MILLIGRAM, QD
     Dates: start: 202104

REACTIONS (5)
  - Palpitations [Unknown]
  - Arrhythmia [Unknown]
  - Diarrhoea [Unknown]
  - Skin atrophy [Unknown]
  - Alopecia [Unknown]

NARRATIVE: CASE EVENT DATE: 20240923
